FAERS Safety Report 6200425-8 (Version None)
Quarter: 2009Q2

REPORT INFORMATION
  Report Type: 
  Country: None (occurrence: None)
  Receive Date: 20090522
  Receipt Date: 20090508
  Transmission Date: 20091009
  Serious: Yes (Hospitalization)
  Sender: FDA-Public Use
  Company Number: GB-GENENTECH-278568

PATIENT
  Sex: Male

DRUGS (12)
  1. BEVACIZUMAB [Suspect]
     Indication: COLON CANCER
     Dosage: UNK
     Route: 065
     Dates: start: 20090115
  2. BEVACIZUMAB [Suspect]
     Dosage: UNK
     Dates: start: 20090505
  3. CAPECITABINE [Suspect]
     Indication: COLORECTAL CANCER
     Dosage: UNK
     Route: 065
     Dates: start: 20090115
  4. CAPECITABINE [Suspect]
     Dosage: UNK
     Dates: start: 20090505
  5. OXALIPLATIN [Suspect]
     Indication: COLORECTAL CANCER
     Dosage: UNK
     Route: 065
     Dates: start: 20090115
  6. OXALIPLATIN [Suspect]
     Dosage: UNK
     Dates: start: 20090505
  7. TAZOCIN [Concomitant]
     Indication: DRUG USE FOR UNKNOWN INDICATION
  8. TIMOLOL MALEATE [Concomitant]
     Indication: DRUG USE FOR UNKNOWN INDICATION
  9. LATANOPROST [Concomitant]
     Indication: DRUG USE FOR UNKNOWN INDICATION
  10. ADCAL-D3 [Concomitant]
     Indication: DRUG USE FOR UNKNOWN INDICATION
  11. PARACETAMOL [Concomitant]
     Indication: DRUG USE FOR UNKNOWN INDICATION
  12. GENTAMYCIN SULFATE [Concomitant]
     Indication: DRUG USE FOR UNKNOWN INDICATION

REACTIONS (1)
  - PYREXIA [None]
